FAERS Safety Report 9423315 (Version 2)
Quarter: 2013Q3

REPORT INFORMATION
  Report Type: Report from Study
  Country: US (occurrence: US)
  Receive Date: 20130726
  Receipt Date: 20130802
  Transmission Date: 20140515
  Serious: Yes (Hospitalization, Disabling, Other)
  Sender: FDA-Public Use
  Company Number: US-ABBOTT-13P-163-1122638-00

PATIENT
  Age: 65 Year
  Sex: Female
  Weight: 65.38 kg

DRUGS (8)
  1. HUMIRA [Suspect]
     Indication: CROHN^S DISEASE
  2. HUMIRA [Suspect]
     Dates: end: 2013
  3. HUMIRA [Suspect]
     Dates: start: 2013
  4. PERPHENAZINE-AMITRIPTYLINE [Suspect]
     Indication: RESTLESS LEGS SYNDROME
     Dates: end: 201212
  5. CYMBALTA [Suspect]
     Indication: DEPRESSION
     Dates: end: 2013
  6. PROZAC [Concomitant]
     Indication: DEPRESSION
  7. ATIVAN [Concomitant]
     Indication: DEPRESSION
  8. CELEBREX [Concomitant]
     Indication: PRODUCT USED FOR UNKNOWN INDICATION

REACTIONS (19)
  - Amnesia [Not Recovered/Not Resolved]
  - Tremor [Recovered/Resolved]
  - Movement disorder [Recovered/Resolved]
  - Tremor [Recovered/Resolved]
  - Drooling [Recovered/Resolved]
  - Cerebrovascular accident [Not Recovered/Not Resolved]
  - Transient ischaemic attack [Unknown]
  - Fall [Recovered/Resolved]
  - Spinal compression fracture [Not Recovered/Not Resolved]
  - Back pain [Not Recovered/Not Resolved]
  - Intracranial aneurysm [Not Recovered/Not Resolved]
  - Tremor [Not Recovered/Not Resolved]
  - Aphasia [Recovered/Resolved]
  - Hemiparesis [Not Recovered/Not Resolved]
  - VIIth nerve paralysis [Not Recovered/Not Resolved]
  - Gait disturbance [Not Recovered/Not Resolved]
  - Cerebrovascular accident [Not Recovered/Not Resolved]
  - Skin wound [Not Recovered/Not Resolved]
  - Eczema [Not Recovered/Not Resolved]
